FAERS Safety Report 6022374-0 (Version None)
Quarter: 2008Q4

REPORT INFORMATION
  Report Type: 
  Country: None (occurrence: None)
  Receive Date: 20081221
  Receipt Date: 20081221
  Transmission Date: 20090506
  Serious: Yes (Death)
  Sender: FDA-Public Use
  Company Number: None

PATIENT
  Age: 75 Year
  Sex: Male
  Weight: 68.0396 kg

DRUGS (1)
  1. METHOTREXATE [Suspect]
     Indication: RHEUMATOID ARTHRITIS
     Dosage: SIX TABLETS WEEKLY PO TWO YEARS +
     Route: 048

REACTIONS (4)
  - BLOOD COUNT ABNORMAL [None]
  - CHEST PAIN [None]
  - COUGH [None]
  - DYSPNOEA [None]
